FAERS Safety Report 5202291-6 (Version None)
Quarter: 2006Q4

REPORT INFORMATION
  Report Type: 
  Country: None (occurrence: None)
  Receive Date: 20061003
  Receipt Date: 20060816
  Transmission Date: 20070319
  Serious: Yes (Other)
  Sender: FDA-Public Use
  Company Number: US-JNJFOC-20060804822

PATIENT
  Sex: Male

DRUGS (1)
  1. ULTRAM SR [Suspect]
     Indication: PAIN
     Dosage: 400 MG, 1 IN 1 DAY, ORAL
     Route: 048

REACTIONS (1)
  - CONVULSION [None]
